FAERS Safety Report 4718560-X (Version None)
Quarter: 2005Q3

REPORT INFORMATION
  Report Type: 
  Country: None (occurrence: None)
  Receive Date: 20050720
  Receipt Date: 20050629
  Transmission Date: 20060218
  Serious: Yes (Life-Threatening, Hospitalization)
  Sender: FDA-Public Use
  Company Number: FR-SANOFI-SYNTHELABO-F01200501127

PATIENT
  Sex: Male

DRUGS (5)
  1. OXALIPLATIN [Suspect]
     Indication: COLON CANCER
     Route: 042
     Dates: start: 20050531, end: 20050531
  2. FLUOROURACIL [Suspect]
     Dosage: 400MG/M2 IV BOLUS AND 600MG/M2 CONTINUOUS INFUSION Q2W
     Route: 042
     Dates: start: 20050517, end: 20050518
  3. LEUCOVORIN [Suspect]
     Dosage: 160 MG ON DAYS 1+ 2 EVERY 2 WEEKS
     Route: 042
     Dates: start: 20050531, end: 20050531
  4. BEVACIZUMAB [Suspect]
     Route: 042
  5. GRANISETRON  HCL [Concomitant]
     Dosage: UNK
     Route: 065
     Dates: start: 20050531, end: 20050531

REACTIONS (2)
  - CONVULSION [None]
  - DISCOMFORT [None]
